FAERS Safety Report 13507221 (Version 2)
Quarter: 2017Q2

REPORT INFORMATION
  Report Type: Report from Study
  Country: None (occurrence: US)
  Receive Date: 20170503
  Receipt Date: 20170518
  Transmission Date: 20170830
  Serious: Yes (Hospitalization, Other)
  Sender: FDA-Public Use
  Company Number: US-ABBVIE-17K-163-1954984-00

PATIENT
  Sex: Female

DRUGS (1)
  1. HUMIRA [Suspect]
     Active Substance: ADALIMUMAB
     Indication: CROHN^S DISEASE
     Route: 058

REACTIONS (5)
  - Hypertension [Not Recovered/Not Resolved]
  - Fungal infection [Recovering/Resolving]
  - Oophorectomy [Recovering/Resolving]
  - Central venous catheterisation [Recovered/Resolved]
  - Hospitalisation [Not Recovered/Not Resolved]
